FAERS Safety Report 8336598-0 (Version None)
Quarter: 2012Q1

REPORT INFORMATION
  Report Type: 
  Country: None (occurrence: None)
  Receive Date: 20120329
  Receipt Date: 20100422
  Transmission Date: 20120608
  Serious: Yes (Other)
  Sender: FDA-Public Use
  Company Number: PHEH2010US02918

PATIENT
  Age: 61 Year
  Sex: Male
  Weight: 68 kg

DRUGS (1)
  1. EXELON [Suspect]
     Dosage: 4.6 MG, QD, TRANSDERMAL
     Route: 062
     Dates: start: 20100102, end: 20100202

REACTIONS (1)
  - HALLUCINATION [None]
